FAERS Safety Report 5552641-6 (Version None)
Quarter: 2007Q4

REPORT INFORMATION
  Report Type: 
  Country: None (occurrence: None)
  Receive Date: 20071203
  Receipt Date: 20071121
  Transmission Date: 20080405
  Serious: Yes (Other)
  Sender: FDA-Public Use
  Company Number: CHPA2007US12573

PATIENT
  Age: 47 Year
  Sex: Male

DRUGS (1)
  1. 4 WAY FAST ACTING NASAL SPRAY (NCH)(PHENYLEPHRINE) NASAL SPRAY [Suspect]
     Indication: NASAL CONGESTION
     Dosage: 20 TIMES IN A DAY, NASAL
     Route: 045
     Dates: start: 20070706

REACTIONS (4)
  - CONDITION AGGRAVATED [None]
  - DRUG DEPENDENCE [None]
  - NASAL CONGESTION [None]
  - OVERDOSE [None]
